FAERS Safety Report 17403421 (Version 3)
Quarter: 2020Q1

REPORT INFORMATION
  Report Type: Report from Study
  Country: US (occurrence: US)
  Receive Date: 20200211
  Receipt Date: 20200309
  Transmission Date: 20200409
  Serious: Yes (Hospitalization)
  Sender: FDA-Public Use
  Company Number: US-ACTELION-A-US2016-141246

PATIENT
  Sex: Female
  Weight: 50.79 kg

DRUGS (4)
  1. ADCIRCA [Concomitant]
     Active Substance: TADALAFIL
  2. OPSUMIT [Suspect]
     Active Substance: MACITENTAN
     Indication: PULMONARY HYPERTENSION
     Dosage: 10 MG, QD
     Route: 048
     Dates: start: 20160531
  3. VELETRI [Suspect]
     Active Substance: EPOPROSTENOL
     Dosage: 20 NG/KG, PER MIN
     Route: 042
  4. VELETRI [Suspect]
     Active Substance: EPOPROSTENOL
     Indication: PULMONARY HYPERTENSION
     Dosage: 20 NG/KG, PER MIN
     Route: 042
     Dates: start: 20160513

REACTIONS (14)
  - Urinary tract infection [Unknown]
  - Malaise [Unknown]
  - Headache [Unknown]
  - Ocular hyperaemia [Unknown]
  - Dry eye [Unknown]
  - Pyrexia [Unknown]
  - Balance disorder [Unknown]
  - Candida infection [Unknown]
  - Tooth disorder [Unknown]
  - Hospitalisation [Unknown]
  - Bladder disorder [Unknown]
  - Infection [Unknown]
  - Pharyngitis streptococcal [Unknown]
  - Diarrhoea [Unknown]
